FAERS Safety Report 8366997-2 (Version None)
Quarter: 2012Q2

REPORT INFORMATION
  Report Type: 
  Country: None (occurrence: None)
  Receive Date: 20120515
  Receipt Date: 20120515
  Transmission Date: 20120825
  Serious: Yes (Disabling)
  Sender: FDA-Public Use
  Company Number: None

PATIENT
  Sex: Male
  Weight: 90.7194 kg

DRUGS (2)
  1. PROPECIA [Suspect]
     Indication: ANDROGENETIC ALOPECIA
     Dosage: 1 MG DAILY
     Dates: start: 20000101
  2. PROPECIA [Suspect]
     Indication: ANDROGENETIC ALOPECIA
     Dosage: 1 MG DAILY
     Dates: start: 20120417

REACTIONS (6)
  - NEUROPATHY PERIPHERAL [None]
  - SPEECH DISORDER [None]
  - PEYRONIE'S DISEASE [None]
  - DEPRESSION [None]
  - GYNAECOMASTIA [None]
  - FEELING ABNORMAL [None]
